FAERS Safety Report 10635156 (Version 3)
Quarter: 2015Q2

REPORT INFORMATION
  Report Type: Spontaneous
  Country: US (occurrence: US)
  Receive Date: 20141205
  Receipt Date: 20150514
  Transmission Date: 20150821
  Serious: Yes (Other)
  Sender: FDA-Public Use
  Company Number: US-PFIZER INC-2014329712

PATIENT
  Age: 56 Year
  Sex: Female
  Weight: 125 kg

DRUGS (3)
  1. LETAIRIS [Concomitant]
     Active Substance: AMBRISENTAN
     Indication: PULMONARY HYPERTENSION
     Dosage: 10 MG, 1X/DAY
  2. REVATIO [Suspect]
     Active Substance: SILDENAFIL CITRATE
     Indication: PULMONARY HYPERTENSION
     Dosage: 20 MG, 3X/DAY
     Route: 048
     Dates: start: 201311
  3. REVATIO [Suspect]
     Active Substance: SILDENAFIL CITRATE
     Dosage: UNK

REACTIONS (12)
  - Abdominal pain upper [Unknown]
  - Gallbladder disorder [Unknown]
  - Dizziness [Not Recovered/Not Resolved]
  - Visual acuity reduced [Unknown]
  - Metamorphopsia [Unknown]
  - Photophobia [Unknown]
  - Visual impairment [Not Recovered/Not Resolved]
  - Retching [Unknown]
  - Visual impairment [Unknown]
  - Ulcerative keratitis [Recovered/Resolved]
  - Diplopia [Not Recovered/Not Resolved]
  - Visual brightness [Unknown]

NARRATIVE: CASE EVENT DATE: 201411
